FAERS Safety Report 14344481 (Version 1)
Quarter: 2018Q1

REPORT INFORMATION
  Report Type: Spontaneous
  Country: US (occurrence: US)
  Receive Date: 20180102
  Receipt Date: 20180102
  Transmission Date: 20180509
  Serious: Yes (Other)
  Sender: FDA-Public Use
  Company Number: US-NAPPMUNDI-USA-2017-0138911

PATIENT
  Sex: Female

DRUGS (4)
  1. METHADONE [Suspect]
     Active Substance: METHADONE HYDROCHLORIDE
     Indication: DRUG ABUSE
     Dosage: UNK
     Route: 065
  2. MORPHINE SULFATE (SIMILAR TO NDA 19-516) [Suspect]
     Active Substance: MORPHINE SULFATE
     Indication: DRUG ABUSE
     Dosage: UNK
     Route: 048
  3. XANAX [Suspect]
     Active Substance: ALPRAZOLAM
     Indication: DRUG ABUSE
     Dosage: UNK
     Route: 065
  4. HEROIN [Suspect]
     Active Substance: DIAMORPHINE
     Indication: DRUG ABUSE
     Dosage: UNK
     Route: 065

REACTIONS (1)
  - Drug abuse [Unknown]
